FAERS Safety Report 16070508 (Version 1)
Quarter: 2019Q1

REPORT INFORMATION
  Report Type: Spontaneous
  Country: FR (occurrence: FR)
  Receive Date: 20190314
  Receipt Date: 20190314
  Transmission Date: 20190418
  Serious: Yes (Death, Life-Threatening, Other)
  Sender: FDA-Public Use
  Company Number: FR-AUROBINDO-AUR-APL-2019-012855

PATIENT

DRUGS (4)
  1. CARBOPLATIN. [Suspect]
     Active Substance: CARBOPLATIN
     Indication: NON-HODGKIN^S LYMPHOMA
     Dosage: 680 MILLIGRAM, 1 TOTAL
     Route: 042
     Dates: start: 20090506, end: 20090506
  2. MABTHERA [Suspect]
     Active Substance: RITUXIMAB
     Indication: NON-HODGKIN^S LYMPHOMA
     Dosage: 630 MILLIGRAM, 1 TOTAL
     Route: 042
     Dates: start: 20090505, end: 20090505
  3. VEPESIDE [Suspect]
     Active Substance: ETOPOSIDE
     Indication: NON-HODGKIN^S LYMPHOMA
     Dosage: 504 MILLIGRAM, 1 TOATL
     Route: 041
     Dates: start: 20090505, end: 20090507
  4. HOLOXAN [Suspect]
     Active Substance: IFOSFAMIDE
     Indication: NON-HODGKIN^S LYMPHOMA
     Dosage: 8360 MILLIGRAM, 1 TOATL
     Route: 042
     Dates: start: 20090507, end: 20090507

REACTIONS (3)
  - Pancytopenia [Fatal]
  - Bone marrow failure [Fatal]
  - Shock haemorrhagic [Fatal]

NARRATIVE: CASE EVENT DATE: 20090516
